FAERS Safety Report 6743380-4 (Version None)
Quarter: 2010Q2

REPORT INFORMATION
  Report Type: 
  Country: None (occurrence: None)
  Receive Date: 20100525
  Receipt Date: 20100514
  Transmission Date: 20101027
  Serious: Yes (Other)
  Sender: FDA-Public Use
  Company Number: MIN-00582

PATIENT
  Age: 40 Year
  Sex: Female
  Weight: 49 kg

DRUGS (5)
  1. MYNOCINE (MINOCYCLINE) [Suspect]
     Indication: ACNE
     Dosage: 100 MG, DAILY
     Dates: start: 20050501, end: 20051101
  2. MYNOCINE (MINOCYCLINE) [Suspect]
     Indication: DISEASE RECURRENCE
     Dosage: 100 MG, DAILY
     Dates: start: 20050501, end: 20051101
  3. MYNOCINE (MINOCYCLINE) [Suspect]
     Indication: ACNE
     Dosage: 100 MG, DAILY
     Dates: start: 20020101, end: 20030401
  4. MYNOCINE (MINOCYCLINE) [Suspect]
     Indication: DISEASE RECURRENCE
     Dosage: 100 MG, DAILY
     Dates: start: 20020101, end: 20030401
  5. LAMALIA [Concomitant]

REACTIONS (1)
  - POLYARTERITIS NODOSA [None]
